FAERS Safety Report 5669106-3 (Version None)
Quarter: 2008Q1

REPORT INFORMATION
  Report Type: 
  Country: None (occurrence: None)
  Receive Date: 20080317
  Receipt Date: 20080311
  Transmission Date: 20080703
  Serious: Yes (Other)
  Sender: FDA-Public Use
  Company Number: US-JNJFOC-20080303320

PATIENT
  Sex: Male

DRUGS (5)
  1. CONCERTA [Suspect]
     Indication: DEPRESSION
     Route: 048
  2. CLONAZEPAM [Concomitant]
     Indication: ANXIETY
  3. KADIAN [Concomitant]
     Indication: PAIN
  4. MOBIC [Concomitant]
     Indication: ARTHRITIS
  5. CYMBALTA [Concomitant]
     Indication: DEPRESSION

REACTIONS (4)
  - DEPRESSION [None]
  - DRUG EFFECT DECREASED [None]
  - HYPERSOMNIA [None]
  - SUICIDAL IDEATION [None]
